FAERS Safety Report 6291543-7 (Version None)
Quarter: 2009Q3

REPORT INFORMATION
  Report Type: 
  Country: None (occurrence: None)
  Receive Date: 20090730
  Receipt Date: 20090730
  Transmission Date: 20100115
  Serious: Yes (Other)
  Sender: FDA-Public Use
  Company Number: None

PATIENT
  Age: 45 Year
  Sex: Female
  Weight: 63.5036 kg

DRUGS (2)
  1. PLAQUENIL [Suspect]
     Indication: SJOGREN'S SYNDROME
     Dosage: 200 MG TWICE DAILY PO
     Route: 048
     Dates: start: 20090429, end: 20090718
  2. PLAQUENIL [Suspect]
     Indication: SYSTEMIC LUPUS ERYTHEMATOSUS
     Dosage: 200 MG TWICE DAILY PO
     Route: 048
     Dates: start: 20090429, end: 20090718

REACTIONS (5)
  - CONDITION AGGRAVATED [None]
  - DRUG INEFFECTIVE [None]
  - GENERAL PHYSICAL HEALTH DETERIORATION [None]
  - PRODUCT SUBSTITUTION ISSUE [None]
  - SJOGREN'S SYNDROME [None]
